FAERS Safety Report 6279608-7 (Version None)
Quarter: 2009Q3

REPORT INFORMATION
  Report Type: 
  Country: None (occurrence: None)
  Receive Date: 20090723
  Receipt Date: 20090719
  Transmission Date: 20100115
  Serious: Yes (Other)
  Sender: FDA-Public Use
  Company Number: A0798290A

PATIENT
  Age: 9 Year
  Sex: Female

DRUGS (3)
  1. ADVAIR HFA [Suspect]
     Indication: DRUG USE FOR UNKNOWN INDICATION
     Route: 065
     Dates: start: 20090501
  2. OTHER MEDICATIONS [Concomitant]
  3. ORAL STEROIDS [Concomitant]

REACTIONS (1)
  - ASTHMA [None]
